FAERS Safety Report 13398039 (Version 1)
Quarter: 2017Q2

REPORT INFORMATION
  Report Type: Spontaneous
  Country: FR (occurrence: FR)
  Receive Date: 20170403
  Receipt Date: 20170403
  Transmission Date: 20170830
  Serious: Yes (Hospitalization, Congenital Anomaly)
  Sender: FDA-Public Use
  Company Number: FR-NOVOPROD-538460

PATIENT
  Age: 5 Month
  Sex: Female

DRUGS (15)
  1. LEVEMIR [Suspect]
     Active Substance: INSULIN DETEMIR
     Dosage: 48 IU, QD
     Route: 064
  2. SERESTA [Suspect]
     Active Substance: OXAZEPAM
     Dosage: UNK
     Dates: start: 20161004
  3. TRANXENE T-TAB [Concomitant]
     Active Substance: CLORAZEPATE DIPOTASSIUM
     Dosage: 30 MG, QD
     Route: 064
     Dates: start: 20160202
  4. ANAFRANIL [Suspect]
     Active Substance: CLOMIPRAMINE HYDROCHLORIDE
     Indication: PRODUCT USED FOR UNKNOWN INDICATION
     Dosage: 125 MG, QD
     Route: 064
     Dates: start: 20160202
  5. ZYPREXA [Suspect]
     Active Substance: OLANZAPINE
     Dosage: 30 MG, QD
     Route: 064
     Dates: start: 20160909
  6. ZYPREXA [Suspect]
     Active Substance: OLANZAPINE
     Indication: PRODUCT USED FOR UNKNOWN INDICATION
     Dosage: 20 MG, QD
     Route: 064
     Dates: start: 20160202
  7. SERESTA [Suspect]
     Active Substance: OXAZEPAM
     Indication: PRODUCT USED FOR UNKNOWN INDICATION
     Dosage: 150 MG, QD
     Route: 064
     Dates: start: 20160307
  8. SERESTA [Suspect]
     Active Substance: OXAZEPAM
     Dosage: 25 MG, QD
     Route: 064
     Dates: start: 20160701
  9. ANAFRANIL [Suspect]
     Active Substance: CLOMIPRAMINE HYDROCHLORIDE
     Dosage: 200 MG, QD
     Route: 064
     Dates: start: 20160701
  10. LAMICTAL [Suspect]
     Active Substance: LAMOTRIGINE
     Indication: PRODUCT USED FOR UNKNOWN INDICATION
     Dosage: 150 MG, QD
     Route: 064
     Dates: start: 20160202
  11. LEVEMIR [Suspect]
     Active Substance: INSULIN DETEMIR
     Dosage: 39 IU, QD
     Route: 064
  12. LUDIOMIL [Concomitant]
     Active Substance: MAPROTILINE HYDROCHLORIDE
     Dosage: 75 MG, QD
     Route: 064
  13. LEVEMIR [Suspect]
     Active Substance: INSULIN DETEMIR
     Indication: GESTATIONAL DIABETES
     Dosage: 21 IU, QD  (AT 33 AMENORRHEA WEEKS)
     Route: 064
  14. TERCIAN                            /00759301/ [Concomitant]
     Active Substance: CYAMEMAZINE
     Dosage: 25 MG, QD
     Route: 064
  15. XEROQUEL [Concomitant]
     Active Substance: QUETIAPINE FUMARATE
     Dosage: UNK
     Route: 064

REACTIONS (6)
  - Pulmonary arterial hypertension [Recovered/Resolved]
  - Pulmonary arterial hypertension [Recovered/Resolved]
  - Ventricular septal defect [Recovered/Resolved]
  - Foetal exposure during pregnancy [Recovered/Resolved]
  - Neonatal anoxia [Unknown]
  - Meconium aspiration syndrome [Unknown]

NARRATIVE: CASE EVENT DATE: 20161031
